FAERS Safety Report 6926956-0 (Version None)
Quarter: 2010Q3

REPORT INFORMATION
  Report Type: 
  Country: None (occurrence: None)
  Receive Date: 20100816
  Receipt Date: 20100708
  Transmission Date: 20110219
  Serious: No
  Sender: FDA-Public Use
  Company Number: US-ABBOTT-10P-163-0656522-00

PATIENT
  Sex: Female
  Weight: 77.18 kg

DRUGS (6)
  1. SIMCOR [Suspect]
     Indication: BLOOD CHOLESTEROL INCREASED
     Dosage: 500/20 MG
     Dates: start: 20100629
  2. ZIAC [Concomitant]
     Indication: HYPERTENSION
  3. DIOVAN [Concomitant]
     Indication: HYPERTENSION
  4. SYNTHROID [Concomitant]
     Indication: HYPOTHYROIDISM
  5. PAXIL [Concomitant]
     Indication: DEPRESSION
  6. XANAX [Concomitant]
     Indication: ANXIETY

REACTIONS (2)
  - FAECES DISCOLOURED [None]
  - HEPATIC PAIN [None]
